FAERS Safety Report 5513200-4 (Version None)
Quarter: 2007Q4

REPORT INFORMATION
  Report Type: 
  Country: None (occurrence: None)
  Receive Date: 20071112
  Receipt Date: 20071029
  Transmission Date: 20080405
  Serious: Yes (Disabling, Other)
  Sender: FDA-Public Use
  Company Number: RO-ROCHE-528439

PATIENT
  Age: 56 Year
  Sex: Female
  Weight: 76 kg

DRUGS (4)
  1. PEGASYS [Suspect]
     Route: 058
     Dates: start: 20061006, end: 20070910
  2. PEGASYS [Suspect]
     Route: 058
  3. COPEGUS [Suspect]
     Route: 048
     Dates: start: 20061006, end: 20070910
  4. COPEGUS [Suspect]
     Route: 048

REACTIONS (4)
  - GINGIVITIS [None]
  - HYPODONTIA [None]
  - TOOTH FRACTURE [None]
  - TOOTH INFECTION [None]
